FAERS Safety Report 12216232 (Version 1)
Quarter: 2016Q1

REPORT INFORMATION
  Report Type: Spontaneous
  Country: IR (occurrence: IR)
  Receive Date: 20160329
  Receipt Date: 20160329
  Transmission Date: 20160526
  Serious: Yes (Hospitalization, Other)
  Sender: FDA-Public Use
  Company Number: IR-ALEMBIC PHARMACUETICALS LIMITED-2016SCAL000215

PATIENT

DRUGS (1)
  1. LITHIUM CARBONATE. [Suspect]
     Active Substance: LITHIUM CARBONATE
     Indication: PRODUCT USED FOR UNKNOWN INDICATION
     Dosage: PILL
     Route: 048

REACTIONS (8)
  - Miosis [Unknown]
  - Hyporeflexia [Unknown]
  - Pupillary reflex impaired [Unknown]
  - Renal function test abnormal [Unknown]
  - Acidosis [Unknown]
  - Tremor [Unknown]
  - Toxicity to various agents [Unknown]
  - Hyperreflexia [Unknown]
